FAERS Safety Report 16628762 (Version 1)
Quarter: 2019Q3

REPORT INFORMATION
  Report Type: Spontaneous
  Country: US (occurrence: US)
  Receive Date: 20190612
  Receipt Date: 20190612
  Transmission Date: 20191004
  Serious: Yes (Hospitalization)
  Sender: FDA-Public Use
  Company Number: None

PATIENT
  Age: 63 Year
  Sex: Male

DRUGS (11)
  1. HUMIRA [Suspect]
     Active Substance: ADALIMUMAB
     Dosage: 40MG/0.8ML EVERY 2 WEEKS SUBCUTANEOUSLY
     Route: 058
     Dates: start: 20190129
  2. METHOTREXATE. [Concomitant]
     Active Substance: METHOTREXATE
  3. ALFUZOSIN [Concomitant]
     Active Substance: ALFUZOSIN
  4. ESCITALOPRAM [Concomitant]
     Active Substance: ESCITALOPRAM OXALATE
  5. HYDROMORPHON [Concomitant]
     Active Substance: HYDROMORPHONE
  6. MELOZICAM [Concomitant]
  7. ATORVASTATIN [Concomitant]
     Active Substance: ATORVASTATIN
  8. CLINDAMYCIN. [Concomitant]
     Active Substance: CLINDAMYCIN
  9. DULOXETINE. [Concomitant]
     Active Substance: DULOXETINE
  10. HYDROCO/APAP [Concomitant]
     Active Substance: ACETAMINOPHEN\HYDROCODONE
  11. LISINOPRIL. [Concomitant]
     Active Substance: LISINOPRIL

REACTIONS (1)
  - Surgery [None]
